FAERS Safety Report 7554501-8 (Version None)
Quarter: 2011Q2

REPORT INFORMATION
  Report Type: 
  Country: None (occurrence: None)
  Receive Date: 20110617
  Receipt Date: 20110523
  Transmission Date: 20111010
  Serious: Yes (Hospitalization)
  Sender: FDA-Public Use
  Company Number: B0723446A

PATIENT
  Age: 12 Year
  Sex: Female

DRUGS (2)
  1. VALPROIC ACID [Concomitant]
     Indication: MYOCLONIC EPILEPSY
     Dosage: 800MG PER DAY
     Route: 065
  2. LAMOTRIGINE [Suspect]
     Indication: EPILEPSY
     Dosage: 75MG PER DAY
     Route: 065

REACTIONS (16)
  - EOSINOPHILIA [None]
  - OROPHARYNGEAL PAIN [None]
  - FACE OEDEMA [None]
  - ASPARTATE AMINOTRANSFERASE INCREASED [None]
  - RASH MORBILLIFORM [None]
  - ALANINE AMINOTRANSFERASE INCREASED [None]
  - DERMATITIS EXFOLIATIVE [None]
  - HYPERAEMIA [None]
  - LYMPHOCYTOSIS [None]
  - DRUG RASH WITH EOSINOPHILIA AND SYSTEMIC SYMPTOMS [None]
  - PYREXIA [None]
  - RASH MACULO-PAPULAR [None]
  - C-REACTIVE PROTEIN INCREASED [None]
  - ERYTHEMA [None]
  - BLOOD LACTATE DEHYDROGENASE INCREASED [None]
  - LYMPHADENOPATHY [None]
